FAERS Safety Report 8390341-8 (Version None)
Quarter: 2012Q2

REPORT INFORMATION
  Report Type: 
  Country: None (occurrence: None)
  Receive Date: 20120515
  Receipt Date: 20120503
  Transmission Date: 20120825
  Serious: Yes (Hospitalization)
  Sender: FDA-Public Use
  Company Number: 2012SP024315

PATIENT
  Age: 44 Year
  Sex: Female
  Weight: 48.5349 kg

DRUGS (18)
  1. COLACE [Concomitant]
  2. ZOFRAN [Concomitant]
  3. GUAIFENESIN [Concomitant]
  4. VIDAZA [Suspect]
     Indication: SYNOVIAL SARCOMA METASTATIC
  5. ACETAMINOPHEN AND OXYCODONE HCL [Concomitant]
  6. IBUPROFEN [Concomitant]
  7. ENOXAPARIN [Concomitant]
  8. MORPHINE SULFATE [Concomitant]
  9. SENNA-MINT WAF [Concomitant]
  10. TEMOZOLOMIDE [Suspect]
     Indication: LEIOMYOSARCOMA METASTATIC
  11. PIPERACILLIN/TAZOBACTAM [Concomitant]
  12. LORAZEPAM [Concomitant]
  13. DUCUSATE SODIUM [Concomitant]
  14. AZITHROMYCIN [Concomitant]
  15. VANCOMYCIN [Concomitant]
  16. HYDROMORPHONE HCL [Concomitant]
  17. IODIXANOL [Concomitant]
  18. OXYCODONE HYDROCHLORIDE [Concomitant]

REACTIONS (5)
  - HYPOTENSION [None]
  - LOBAR PNEUMONIA [None]
  - PLEURAL EFFUSION [None]
  - CHEST PAIN [None]
  - PAIN [None]
